FAERS Safety Report 5228939-8 (Version None)
Quarter: 2007Q1

REPORT INFORMATION
  Report Type: 
  Country: None (occurrence: None)
  Receive Date: 20061201
  Receipt Date: 20051208
  Transmission Date: 20070707
  Serious: Yes (Other)
  Sender: FDA-Public Use
  Company Number: 006208

PATIENT
  Age: 29 Year
  Sex: Female
  Weight: 49.9 kg

DRUGS (3)
  1. DIAMOX [Suspect]
     Indication: CONVULSION
     Dosage: 1 CAPS., BID, ORAL
     Route: 048
     Dates: start: 19900101
  2. TEGRETOL [Concomitant]
  3. TOPAMAX [Concomitant]

REACTIONS (2)
  - CONDITION AGGRAVATED [None]
  - CONVULSION [None]
